FAERS Safety Report 18527339 (Version 1)
Quarter: 2020Q4

REPORT INFORMATION
  Report Type: Spontaneous
  Country: CN (occurrence: CN)
  Receive Date: 20201120
  Receipt Date: 20201120
  Transmission Date: 20210114
  Serious: Yes (Other)
  Sender: FDA-Public Use
  Company Number: CN-PFIZER INC-2020455541

PATIENT
  Age: 3 Year
  Sex: Male
  Weight: 19 kg

DRUGS (2)
  1. SOLU-MEDROL [Suspect]
     Active Substance: METHYLPREDNISOLONE SODIUM SUCCINATE
     Indication: BRONCHITIS
     Dosage: 20 MG, 1X/DAY
     Route: 041
     Dates: start: 20201030, end: 20201030
  2. GLUCOSE [Concomitant]
     Active Substance: DEXTROSE
     Indication: BRONCHITIS
     Dosage: 100 ML, 1X/DAY
     Route: 041
     Dates: start: 20201030, end: 20201030

REACTIONS (2)
  - Erythema [Recovering/Resolving]
  - Pruritus [Recovering/Resolving]

NARRATIVE: CASE EVENT DATE: 20201030
